FAERS Safety Report 7971891-2 (Version None)
Quarter: 2011Q4

REPORT INFORMATION
  Report Type: 
  Country: None (occurrence: None)
  Receive Date: 20111212
  Receipt Date: 20111208
  Transmission Date: 20120403
  Serious: Yes (Life-Threatening, Other)
  Sender: FDA-Public Use
  Company Number: PHHY2011IE107553

PATIENT

DRUGS (2)
  1. NEORAL [Concomitant]
  2. TOBI [Suspect]

REACTIONS (2)
  - RENAL FAILURE [None]
  - TOXICITY TO VARIOUS AGENTS [None]
